FAERS Safety Report 12777467 (Version 1)
Quarter: 2016Q3

REPORT INFORMATION
  Report Type: Spontaneous
  Country: US (occurrence: US)
  Receive Date: 20160924
  Receipt Date: 20160924
  Transmission Date: 20161109
  Serious: No
  Sender: FDA-Public Use
  Company Number: US-TEVA-598151USA

PATIENT

DRUGS (1)
  1. CLONAZEPAM. [Suspect]
     Active Substance: CLONAZEPAM
     Route: 065

REACTIONS (6)
  - Headache [Unknown]
  - Product substitution issue [Unknown]
  - Nausea [Unknown]
  - Photophobia [Unknown]
  - Movement disorder [Unknown]
  - Dysgeusia [Unknown]
